FAERS Safety Report 7166129-2 (Version None)
Quarter: 2010Q4

REPORT INFORMATION
  Report Type: 
  Country: None (occurrence: None)
  Receive Date: 20101216
  Receipt Date: 20101207
  Transmission Date: 20110411
  Serious: Yes (Hospitalization, Other)
  Sender: FDA-Public Use
  Company Number: US-JNJFOC-20090705818

PATIENT
  Sex: Female
  Weight: 88.45 kg

DRUGS (2)
  1. LEVAQUIN [Suspect]
     Indication: LUNG INFECTION
     Route: 065
  2. LEVAQUIN [Suspect]
     Indication: SINUSITIS
     Route: 065

REACTIONS (5)
  - MENISCUS LESION [None]
  - ROTATOR CUFF SYNDROME [None]
  - SYNOVITIS [None]
  - TENDON RUPTURE [None]
  - TENDONITIS [None]
